FAERS Safety Report 8882114 (Version 3)
Quarter: 2013Q2

REPORT INFORMATION
  Report Type: Spontaneous
  Country: JP (occurrence: JP)
  Receive Date: 20121105
  Receipt Date: 20130426
  Transmission Date: 20140414
  Serious: Yes (Other)
  Sender: FDA-Public Use
  Company Number: JP-JNJFOC-20121100156

PATIENT
  Age: 61 Year
  Sex: Female
  Weight: 77 kg

DRUGS (8)
  1. REMICADE [Suspect]
     Indication: PUSTULAR PSORIASIS
     Route: 042
     Dates: start: 20101119
  2. REMICADE [Suspect]
     Indication: PUSTULAR PSORIASIS
     Dosage: 6TH DOSE
     Route: 042
     Dates: start: 20110708
  3. REMICADE [Suspect]
     Indication: PUSTULAR PSORIASIS
     Dosage: 5TH INFUSION
     Route: 042
     Dates: start: 20110513
  4. LOXOPROFEN [Concomitant]
     Indication: ARTHRALGIA
     Route: 048
     Dates: start: 20100216
  5. ALLELOCK [Concomitant]
     Indication: PUSTULAR PSORIASIS
     Route: 048
     Dates: start: 20101119, end: 20110930
  6. MYSLEE [Concomitant]
     Indication: INSOMNIA
     Route: 048
     Dates: start: 20110114
  7. ECLAR [Concomitant]
     Indication: PUSTULAR PSORIASIS
     Route: 065
     Dates: start: 20110311, end: 20110901
  8. WHITE PETROLATUM [Concomitant]
     Indication: PUSTULAR PSORIASIS
     Dates: end: 20110707

REACTIONS (1)
  - Tuberculosis [Recovered/Resolved]
